FAERS Safety Report 8802883 (Version 1)
Quarter: 2012Q4

REPORT INFORMATION
  Report Type: 
  Country: US (occurrence: US)
  Receive Date: 20120924
  Receipt Date: 20120924
  Transmission Date: 20130627
  Serious: Yes (Hospitalization, Other)
  Sender: FDA-Public Use
  Company Number: US-BRISTOL-MYERS SQUIBB COMPANY-16971327

PATIENT
  Age: 58 Year
  Sex: Male
  Weight: 86 kg

DRUGS (2)
  1. ORENCIA FOR INJ [Suspect]
     Dosage: Every 2 wks in the begining for 3wks
Last inf:JUL12
     Route: 042
     Dates: start: 201111
  2. COUMADIN [Concomitant]

REACTIONS (3)
  - Diverticulitis [Recovered/Resolved]
  - Muscle strain [Not Recovered/Not Resolved]
  - Thrombosis [Not Recovered/Not Resolved]
